FAERS Safety Report 4865690-8 (Version None)
Quarter: 2005Q4

REPORT INFORMATION
  Report Type: 
  Country: None (occurrence: None)
  Receive Date: 20051220
  Receipt Date: 20051209
  Transmission Date: 20060501
  Serious: Yes (Hospitalization)
  Sender: FDA-Public Use
  Company Number: 2005PV005614

PATIENT
  Age: 88 Year
  Sex: Female
  Weight: 88.905 kg

DRUGS (2)
  1. BYETTA [Suspect]
     Indication: DIABETES MELLITUS NON-INSULIN-DEPENDENT
     Dosage: 5 MCG;BID;SC
     Route: 058
     Dates: start: 20051101
  2. LANTUS [Concomitant]

REACTIONS (3)
  - ARTHRALGIA [None]
  - FALL [None]
  - MUSCLE INJURY [None]
